FAERS Safety Report 18658087 (Version 2)
Quarter: 2021Q2

REPORT INFORMATION
  Report Type: Report from Study
  Country: IT (occurrence: IT)
  Receive Date: 20201224
  Receipt Date: 20210503
  Transmission Date: 20210717
  Serious: Yes (Life-Threatening, Other)
  Sender: FDA-Public Use
  Company Number: IT-GLAXOSMITHKLINE-IT2020EME253585

PATIENT
  Age: 59 Year
  Sex: Female
  Weight: 71 kg

DRUGS (3)
  1. PANTOPRAZOLE [Concomitant]
     Active Substance: PANTOPRAZOLE
     Indication: GASTRITIS
     Dosage: 20 MG, QD
     Route: 048
  2. NIRAPARIB [Suspect]
     Active Substance: NIRAPARIB
     Indication: OVARIAN CANCER
     Dosage: 200 MG, QD
     Route: 048
     Dates: start: 20200623, end: 20201217
  3. ZOFENOPRIL [Concomitant]
     Active Substance: ZOFENOPRIL
     Indication: HYPERTENSION
     Dosage: 20 MG, QD
     Route: 048

REACTIONS (1)
  - Cardiac failure [Recovering/Resolving]

NARRATIVE: CASE EVENT DATE: 20201217
